FAERS Safety Report 16551094 (Version 1)
Quarter: 2019Q3

REPORT INFORMATION
  Report Type: Spontaneous
  Country: JP (occurrence: JP)
  Receive Date: 20190710
  Receipt Date: 20190710
  Transmission Date: 20191004
  Serious: No
  Sender: FDA-Public Use
  Company Number: JP-BEH-2019103974

PATIENT
  Age: 45 Year
  Sex: Female

DRUGS (1)
  1. ALBUMINAR-5 [Suspect]
     Active Substance: ALBUMIN HUMAN
     Indication: HYPOVOLAEMIA
     Dosage: 12.5 GRAM/250ML
     Route: 042
     Dates: start: 20190619, end: 20190619

REACTIONS (4)
  - Wheezing [Recovering/Resolving]
  - Blood pressure decreased [Recovering/Resolving]
  - Wheezing [Recovered/Resolved]
  - Blood pressure decreased [Recovered/Resolved]

NARRATIVE: CASE EVENT DATE: 20190619
